FAERS Safety Report 12046396 (Version 1)
Quarter: 2016Q1

REPORT INFORMATION
  Report Type: Spontaneous
  Country: US (occurrence: US)
  Receive Date: 20160208
  Receipt Date: 20160208
  Transmission Date: 20160526
  Serious: No
  Sender: FDA-Public Use
  Company Number: US-BIOGEN-2016BI00178227

PATIENT
  Sex: Female

DRUGS (1)
  1. AVONEX [Suspect]
     Active Substance: INTERFERON BETA-1A
     Indication: MULTIPLE SCLEROSIS
     Dates: start: 19991001

REACTIONS (6)
  - Muscular weakness [Not Recovered/Not Resolved]
  - Insomnia [Recovered/Resolved]
  - Abasia [Not Recovered/Not Resolved]
  - Mobility decreased [Recovered/Resolved]
  - Restless legs syndrome [Recovered/Resolved]
  - General symptom [Recovered/Resolved]

NARRATIVE: CASE EVENT DATE: 2004
